FAERS Safety Report 11273656 (Version 1)
Quarter: 2015Q2

REPORT INFORMATION
  Report Type: Spontaneous
  Country: US (occurrence: None)
  Receive Date: 20150625
  Receipt Date: 20150625
  Transmission Date: 20150821
  Serious: No
  Sender: FDA-Public Use
  Company Number: A-NJ2015-115174

PATIENT
  Age: 75 Year
  Sex: Male

DRUGS (4)
  1. OXYGEN. [Concomitant]
     Active Substance: OXYGEN
  2. OPSUMIT [Suspect]
     Active Substance: MACITENTAN
     Indication: PULMONARY ARTERIAL HYPERTENSION
     Route: 048
  3. WARFARIN [Concomitant]
     Active Substance: WARFARIN
  4. LASIX [Suspect]
     Active Substance: FUROSEMIDE
     Indication: PRODUCT USED FOR UNKNOWN INDICATION
     Dosage: IN AM

REACTIONS (7)
  - Oedema peripheral [None]
  - Weight increased [None]
  - Fluid retention [None]
  - Localised oedema [None]
  - Oxygen consumption increased [None]
  - Renal disorder [None]
  - Dyspnoea [None]
